FAERS Safety Report 6063153-8 (Version None)
Quarter: 2009Q1

REPORT INFORMATION
  Report Type: 
  Country: None (occurrence: None)
  Receive Date: 20090203
  Receipt Date: 20090122
  Transmission Date: 20090719
  Serious: Yes (Death)
  Sender: FDA-Public Use
  Company Number: CA-ROCHE-603917

PATIENT
  Sex: Male
  Weight: 95.5 kg

DRUGS (14)
  1. CAPECITABINE [Suspect]
     Dosage: 2150 MG, D1-14/Q3W
     Route: 048
     Dates: start: 20081024, end: 20081214
  2. CAPECITABINE [Suspect]
     Dosage: ON DAYS 1 TO 14 EVERY 21 DAYS
     Route: 048
     Dates: start: 20081024, end: 20081214
  3. BEVACIZUMAB [Suspect]
     Dosage: 712.5 MG, Q3W
     Route: 042
     Dates: start: 20081024, end: 20081205
  4. BEVACIZUMAB [Suspect]
     Route: 042
     Dates: start: 20081024, end: 20081205
  5. OXALIPLATIN [Suspect]
     Dosage: 219 MG, Q3W
     Route: 042
     Dates: start: 20081024, end: 20081205
  6. OXALIPLATIN [Suspect]
     Route: 042
     Dates: start: 20081024, end: 20081205
  7. IRINOTECAN HCL [Suspect]
     Dosage: 350 MG, Q3W
     Route: 042
     Dates: start: 20081024, end: 20081205
  8. IRINOTECAN HCL [Suspect]
     Route: 042
     Dates: start: 20081024, end: 20081205
  9. NORVASC [Concomitant]
     Dates: start: 19980101
  10. ASPIRIN [Concomitant]
     Dates: start: 20020101
  11. NABILONE [Concomitant]
     Dates: start: 20081112
  12. ZOFRAN [Concomitant]
     Dates: start: 20081112
  13. IMODIUM [Concomitant]
     Dates: start: 20081112
  14. STEMETIL [Concomitant]
     Indication: NAUSEA

REACTIONS (1)
  - DEATH [None]
